FAERS Safety Report 5146742-4 (Version None)
Quarter: 2006Q4

REPORT INFORMATION
  Report Type: 
  Country: None (occurrence: None)
  Receive Date: 20061109
  Receipt Date: 20060428
  Transmission Date: 20070319
  Serious: Yes (Death, Hospitalization)
  Sender: FDA-Public Use
  Company Number: US-AVENTIS-200614629GDDC

PATIENT
  Age: 64 Year
  Sex: Male
  Weight: 49.44 kg

DRUGS (14)
  1. DOCETAXEL [Suspect]
     Indication: LUNG NEOPLASM MALIGNANT
     Route: 042
     Dates: start: 20060314, end: 20060314
  2. GEMCITABINE [Suspect]
     Indication: LUNG NEOPLASM MALIGNANT
     Route: 042
     Dates: start: 20060314, end: 20060314
  3. LEXAPRO [Concomitant]
     Indication: DEPRESSION
     Dates: start: 20060101
  4. MEGACE [Concomitant]
     Dosage: DOSE: UNK
     Dates: start: 20060101
  5. LORTAB [Concomitant]
     Indication: PAIN
     Dosage: DOSE: 5 MG EVERY 4 HOURS
     Dates: start: 20060309
  6. COMPAZINE [Concomitant]
     Indication: NAUSEA
     Dates: start: 20060313
  7. COMBIVENT                          /01033501/ [Concomitant]
     Indication: CHRONIC OBSTRUCTIVE PULMONARY DISEASE
     Dosage: DOSE: 2 PUFFS
     Dates: start: 20060224
  8. LEVAQUIN [Concomitant]
     Dates: start: 20060224, end: 20060228
  9. ASPIRIN [Concomitant]
     Dates: start: 20060224
  10. COREG [Concomitant]
     Indication: CARDIAC FAILURE CONGESTIVE
     Dates: start: 20060224
  11. LESCOL [Concomitant]
     Indication: HYPERCHOLESTEROLAEMIA
     Dates: start: 19970101
  12. PLAVIX [Concomitant]
     Dates: start: 19970101
  13. HYDROCHLOROTHIAZIDE [Concomitant]
     Dates: start: 19970101
  14. VASOTEC                            /00935901/ [Concomitant]
     Indication: HYPERTENSION
     Dates: start: 19970101

REACTIONS (5)
  - CONFUSIONAL STATE [None]
  - DEATH [None]
  - DISORIENTATION [None]
  - IRRITABILITY [None]
  - MENTAL STATUS CHANGES [None]
